FAERS Safety Report 10959061 (Version 1)
Quarter: 2015Q1

REPORT INFORMATION
  Report Type: Report from Study
  Country: CL (occurrence: CL)
  Receive Date: 20150327
  Receipt Date: 20150327
  Transmission Date: 20150721
  Serious: Yes (Death, Other)
  Sender: FDA-Public Use
  Company Number: CL-ROCHE-1555269

PATIENT
  Age: 79 Year
  Sex: Female

DRUGS (1)
  1. XELODA [Suspect]
     Active Substance: CAPECITABINE
     Indication: BREAST CANCER
     Dosage: 14 DAY PER CYCLE
     Route: 048
     Dates: start: 20150112, end: 20150124

REACTIONS (11)
  - Mouth haemorrhage [Recovered/Resolved]
  - Disorientation [Recovered/Resolved]
  - Urinary tract disorder [Recovered/Resolved]
  - Mucosal inflammation [Recovered/Resolved]
  - Dysphagia [Recovered/Resolved]
  - Eschar [Recovered/Resolved]
  - Somnolence [Recovered/Resolved]
  - Abnormal faeces [Recovered/Resolved]
  - Gastrointestinal disorder [Recovered/Resolved]
  - Cardio-respiratory arrest [Fatal]
  - Urinary incontinence [Recovered/Resolved]

NARRATIVE: CASE EVENT DATE: 20150112
